FAERS Safety Report 21162558 (Version 2)
Quarter: 2022Q3

REPORT INFORMATION
  Report Type: Spontaneous
  Country: JP (occurrence: JP)
  Receive Date: 20220802
  Receipt Date: 20220810
  Transmission Date: 20221027
  Serious: Yes (Death, Other)
  Sender: FDA-Public Use
  Company Number: JP-UCBJ-CD202206972UCBPHAPROD

PATIENT
  Age: 66 Year
  Sex: Male

DRUGS (5)
  1. LEVETIRACETAM [Suspect]
     Active Substance: LEVETIRACETAM
     Indication: Epilepsy
     Dosage: 1000 MILLIGRAM DAILY
     Route: 041
     Dates: start: 20220712, end: 202207
  2. LEVETIRACETAM [Suspect]
     Active Substance: LEVETIRACETAM
     Dosage: 3000 MG DAILY
     Route: 041
     Dates: start: 202207, end: 202207
  3. LEVETIRACETAM [Suspect]
     Active Substance: LEVETIRACETAM
     Dosage: 1000 MILLIGRAM DAILY
     Route: 041
     Dates: start: 20220722, end: 20220722
  4. VIMPAT [Suspect]
     Active Substance: LACOSAMIDE
     Indication: Epilepsy
     Dosage: 100 MILLIGRAM, 2X/DAY (BID)
     Route: 041
     Dates: start: 20220714, end: 20220722
  5. MEROPENEM [Concomitant]
     Active Substance: MEROPENEM
     Indication: Product used for unknown indication
     Dosage: 4 GRAM UNK
     Dates: start: 20220722

REACTIONS (2)
  - Pneumonia aspiration [Fatal]
  - Drug level increased [Unknown]

NARRATIVE: CASE EVENT DATE: 20220722
